FAERS Safety Report 25708991 (Version 1)
Quarter: 2025Q3

REPORT INFORMATION
  Report Type: Other
  Country: US (occurrence: US)
  Receive Date: 20250821
  Receipt Date: 20250821
  Transmission Date: 20251021
  Serious: Yes (Life-Threatening, Hospitalization, Other)
  Sender: RENATA LIMITED
  Company Number: US-Renata Limited-2182920

PATIENT
  Age: 40 Year
  Sex: Male

DRUGS (3)
  1. METOPROLOL TARTRATE [Suspect]
     Active Substance: METOPROLOL TARTRATE
     Indication: Product used for unknown indication
  2. DILTIAZEM [Suspect]
     Active Substance: DILTIAZEM
  3. FLUOXETINE [Suspect]
     Active Substance: FLUOXETINE HYDROCHLORIDE

REACTIONS (12)
  - Ischaemic stroke [Recovered/Resolved]
  - Overdose [Unknown]
  - Bradycardia [Recovered/Resolved]
  - Urine output decreased [Recovered/Resolved]
  - Hypertransaminasaemia [Recovered/Resolved]
  - Metabolic acidosis [Recovered/Resolved]
  - Hypoperfusion [Recovered/Resolved]
  - Right ventricular dysfunction [Recovered/Resolved]
  - Left ventricular dysfunction [Recovered/Resolved]
  - Toxicity to various agents [Recovered/Resolved]
  - Cardiogenic shock [Recovered/Resolved]
  - Cerebral haemorrhage [Recovered/Resolved]
